FAERS Safety Report 18533940 (Version 2)
Quarter: 2020Q4

REPORT INFORMATION
  Report Type: Spontaneous
  Country: US (occurrence: US)
  Receive Date: 20201123
  Receipt Date: 20201124
  Transmission Date: 20210114
  Serious: Yes (Other)
  Sender: FDA-Public Use
  Company Number: US-BRACCO-2019US06507

PATIENT
  Age: 87 Year
  Sex: Male

DRUGS (2)
  1. LUMASON [Suspect]
     Active Substance: SULFUR HEXAFLUORIDE
     Indication: ECHOCARDIOGRAM
     Dosage: UNK UNK, SINGLE
     Route: 042
     Dates: start: 20191204, end: 20191204
  2. HEPARIN [Concomitant]
     Active Substance: HEPARIN SODIUM
     Route: 041

REACTIONS (3)
  - Blood pressure decreased [Unknown]
  - Chest pain [Unknown]
  - Pain in jaw [Unknown]

NARRATIVE: CASE EVENT DATE: 20191204
